FAERS Safety Report 9359113 (Version 2)
Quarter: 2013Q3

REPORT INFORMATION
  Report Type: Report from Study
  Country: UA (occurrence: UA)
  Receive Date: 20130620
  Receipt Date: 20130805
  Transmission Date: 20140515
  Serious: Yes (Hospitalization)
  Sender: FDA-Public Use
  Company Number: UA-GENZYME-CAMP-1002975

PATIENT
  Age: 27 Year
  Sex: Male
  Weight: 74.9 kg

DRUGS (4)
  1. ALEMTUZUMAB [Suspect]
     Indication: MULTIPLE SCLEROSIS
     Dosage: 12 MG, QD
     Route: 042
     Dates: start: 20091211, end: 20091213
  2. ALEMTUZUMAB [Suspect]
     Dosage: 12 MG, QD
     Route: 042
     Dates: start: 20081201, end: 20081205
  3. METHYLPREDNISOLONE [Concomitant]
     Indication: MULTIPLE SCLEROSIS
     Dosage: 1000 MG, QD
     Route: 042
     Dates: start: 20091211, end: 20091213
  4. METHYLPREDNISOLONE [Concomitant]
     Indication: MULTIPLE SCLEROSIS
     Dosage: 1000 MG, QD
     Route: 042
     Dates: start: 20081201, end: 20081203

REACTIONS (1)
  - Autoimmune thyroiditis [Not Recovered/Not Resolved]
